FAERS Safety Report 13186233 (Version 2)
Quarter: 2017Q2

REPORT INFORMATION
  Report Type: Spontaneous
  Country: FI (occurrence: FI)
  Receive Date: 20170204
  Receipt Date: 20170526
  Transmission Date: 20170830
  Serious: Yes (Other)
  Sender: FDA-Public Use
  Company Number: FI-AMGEN-FINSP2017018500

PATIENT
  Age: 70 Year
  Sex: Male

DRUGS (1)
  1. ENBREL [Suspect]
     Active Substance: ETANERCEPT
     Indication: PSORIATIC ARTHROPATHY
     Dosage: UNK
     Route: 065

REACTIONS (3)
  - Neoplasm malignant [Recovered/Resolved]
  - Renal cancer [Unknown]
  - Prostate cancer [Unknown]
